FAERS Safety Report 9354946 (Version 1)
Quarter: 2013Q2

REPORT INFORMATION
  Report Type: Spontaneous
  Country: US (occurrence: US)
  Receive Date: 20130619
  Receipt Date: 20130619
  Transmission Date: 20140414
  Serious: No
  Sender: FDA-Public Use
  Company Number: US-BIOGENIDEC-2013BI053626

PATIENT
  Sex: Female

DRUGS (1)
  1. TYSABRI [Suspect]
     Indication: MULTIPLE SCLEROSIS
     Route: 042
     Dates: start: 20120130

REACTIONS (11)
  - Panic attack [Recovered/Resolved]
  - Fear [Recovered/Resolved]
  - Nail injury [Unknown]
  - Muscular weakness [Not Recovered/Not Resolved]
  - Neck pain [Not Recovered/Not Resolved]
  - Central nervous system lesion [Unknown]
  - Facet joint syndrome [Not Recovered/Not Resolved]
  - Balance disorder [Recovered/Resolved]
  - General symptom [Unknown]
  - Bronchitis [Recovered/Resolved]
  - Dizziness [Recovered/Resolved]
